FAERS Safety Report 6760770-4 (Version None)
Quarter: 2010Q2

REPORT INFORMATION
  Report Type: 
  Country: None (occurrence: None)
  Receive Date: 20100607
  Receipt Date: 20100607
  Transmission Date: 20101027
  Serious: Yes (Other)
  Sender: FDA-Public Use
  Company Number: None

PATIENT
  Sex: Female
  Weight: 51.7101 kg

DRUGS (1)
  1. DURAGESIC-50 [Suspect]
     Dosage: 50 MCG/HR ONCE DAILY TRANSDERMAL
     Route: 062
     Dates: start: 20091101, end: 20100603

REACTIONS (4)
  - HYPERHIDROSIS [None]
  - PRODUCT LOT NUMBER ISSUE [None]
  - PRODUCT ODOUR ABNORMAL [None]
  - PRODUCT SUBSTITUTION ISSUE [None]
